FAERS Safety Report 6970140-1 (Version None)
Quarter: 2010Q3

REPORT INFORMATION
  Report Type: 
  Country: None (occurrence: None)
  Receive Date: 20100908
  Receipt Date: 20100830
  Transmission Date: 20110219
  Serious: Yes (Hospitalization)
  Sender: FDA-Public Use
  Company Number: US-ASTRAZENECA-2010SE40661

PATIENT
  Age: 58 Year
  Sex: Female

DRUGS (3)
  1. CRESTOR [Suspect]
     Route: 048
  2. PREMARIN [Concomitant]
  3. LISINOPRIL [Concomitant]
     Route: 048

REACTIONS (2)
  - LOCAL SWELLING [None]
  - SWOLLEN TONGUE [None]
